FAERS Safety Report 14918606 (Version 1)
Quarter: 2018Q2

REPORT INFORMATION
  Report Type: Report from Study
  Country: KR (occurrence: KR)
  Receive Date: 20180521
  Receipt Date: 20180521
  Transmission Date: 20180711
  Serious: Yes (Other)
  Sender: FDA-Public Use
  Company Number: KR-PFIZER INC-2018203595

PATIENT
  Age: 25 Month
  Sex: Male

DRUGS (6)
  1. CYCLOPHOSPHAMIDE. [Suspect]
     Active Substance: CYCLOPHOSPHAMIDE
     Indication: EPENDYMOMA MALIGNANT
     Dosage: 50 MG/KG, CYCLIC (DAYS 1 + 2)
  2. ETOPOSIDE. [Suspect]
     Active Substance: ETOPOSIDE
     Indication: EPENDYMOMA MALIGNANT
     Dosage: 2.5 MG/KG, CYCLIC (DAYS 0-2) AND (DAYS 0-4)
  3. CARBOPLATIN. [Suspect]
     Active Substance: CARBOPLATIN
     Indication: EPENDYMOMA MALIGNANT
     Dosage: 10 MG/KG, CYCLIC (DAYS 0 + 1)
  4. VINCRISTINE SULFATE. [Suspect]
     Active Substance: VINCRISTINE SULFATE
     Indication: EPENDYMOMA MALIGNANT
     Dosage: 0.05 MG/KG, CYCLIC (DAYS 0 + 7)
  5. CISPLATIN. [Suspect]
     Active Substance: CISPLATIN
     Indication: EPENDYMOMA MALIGNANT
     Dosage: 3 MG/KG, CYCLIC (DAY 0)
  6. IFOSFAMIDE. [Suspect]
     Active Substance: IFOSFAMIDE
     Indication: EPENDYMOMA MALIGNANT
     Dosage: 50 MG/KG, CYCLIC (DAYS 0-4)

REACTIONS (1)
  - Febrile neutropenia [Unknown]
